FAERS Safety Report 9402057 (Version 2)
Quarter: 2013Q3

REPORT INFORMATION
  Report Type: Report from Study
  Country: VE (occurrence: VE)
  Receive Date: 20130716
  Receipt Date: 20130723
  Transmission Date: 20140515
  Serious: Yes (Death, Hospitalization)
  Sender: FDA-Public Use
  Company Number: PHHY2013VE074552

PATIENT
  Age: 77 Year
  Sex: Female

DRUGS (3)
  1. EXJADE [Suspect]
     Indication: IRON OVERLOAD
     Dosage: 1000 MG, DAILY
     Route: 048
     Dates: start: 2011
  2. CHEMOTHERAPEUTICS [Concomitant]
     Indication: LEUKAEMIA
     Dosage: UNK UKN, UNK
     Route: 042
     Dates: start: 2011
  3. BLOOD TRANSFUSION, AUXILIARY PRODUCTS [Concomitant]
     Indication: LEUKAEMIA
     Dosage: UNK UKN, UNK
     Route: 042
     Dates: start: 2009

REACTIONS (2)
  - Gastrointestinal haemorrhage [Fatal]
  - Lower respiratory tract infection [Recovering/Resolving]
